FAERS Safety Report 6623466-5 (Version None)
Quarter: 2010Q1

REPORT INFORMATION
  Report Type: 
  Country: None (occurrence: None)
  Receive Date: 20100304
  Receipt Date: 20100216
  Transmission Date: 20100710
  Serious: Yes (Death, Hospitalization)
  Sender: FDA-Public Use
  Company Number: 2010BI001926

PATIENT
  Age: 48 Year

DRUGS (6)
  1. ZEVALIN [Suspect]
     Indication: NON-HODGKIN'S LYMPHOMA
  2. ZEVALIN [Suspect]
     Indication: STEM CELL TRANSPLANT
  3. RITUXIMAB [Concomitant]
  4. CYCLOSPORINE [Concomitant]
  5. FLUDARABINE PHOSPHATE [Concomitant]
  6. PREV MEDS [Concomitant]

REACTIONS (1)
  - CEREBRAL HAEMORRHAGE [None]
